FAERS Safety Report 5236367-4 (Version None)
Quarter: 2007Q1

REPORT INFORMATION
  Report Type: 
  Country: None (occurrence: None)
  Receive Date: 20070208
  Receipt Date: 20070201
  Transmission Date: 20070707
  Serious: Yes (Death)
  Sender: FDA-Public Use
  Company Number: 222788

PATIENT
  Age: 78 Year
  Sex: Male

DRUGS (5)
  1. GRTPA (ALTEPLASE) PWDR + SOLVENT, INFUSION SOLN [Suspect]
     Indication: ISCHAEMIC STROKE
     Dosage: 30 ML, SINGLE, INTRAVENOUS
     Route: 042
     Dates: start: 20060222, end: 20060222
  2. MANNITOL [Concomitant]
  3. DECADRON [Concomitant]
  4. DOPAMINE (DOPAMINE HYDROCHLORIDE) [Concomitant]
  5. RADICUT (EDARAVONE) [Concomitant]

REACTIONS (6)
  - BLOOD PRESSURE DECREASED [None]
  - BRAIN HERNIATION [None]
  - BRAIN OEDEMA [None]
  - CARDIAC ARREST [None]
  - MYDRIASIS [None]
  - RESPIRATORY DISORDER [None]
